FAERS Safety Report 17867290 (Version 5)
Quarter: 2022Q2

REPORT INFORMATION
  Report Type: Spontaneous
  Country: FR (occurrence: FR)
  Receive Date: 20200605
  Receipt Date: 20220615
  Transmission Date: 20220720
  Serious: Yes (Life-Threatening, Hospitalization, Other)
  Sender: FDA-Public Use
  Company Number: FR-NOVARTISPH-NVSC2020FR157708

PATIENT
  Age: 57 Year
  Sex: Male

DRUGS (4)
  1. EVEROLIMUS [Interacting]
     Active Substance: EVEROLIMUS
     Indication: Liver transplant
     Dosage: UNK
     Route: 065
  2. EVEROLIMUS [Interacting]
     Active Substance: EVEROLIMUS
     Indication: Immunosuppression
  3. APIXABAN [Interacting]
     Active Substance: APIXABAN
     Indication: Ventricular fibrillation
     Dosage: 5 MG, QD
     Route: 065
  4. APIXABAN [Interacting]
     Active Substance: APIXABAN
     Indication: Congestive cardiomyopathy
     Dosage: DOSAGE OF APIXABAN WAS REDUCED TO LIMIT INTERACTION
     Route: 065

REACTIONS (3)
  - Gastroduodenal haemorrhage [Recovering/Resolving]
  - Shock haemorrhagic [Recovering/Resolving]
  - Drug interaction [Unknown]
